FAERS Safety Report 7186051-5 (Version None)
Quarter: 2010Q4

REPORT INFORMATION
  Report Type: 
  Country: None (occurrence: None)
  Receive Date: 20101123
  Receipt Date: 20101007
  Transmission Date: 20110411
  Serious: No
  Sender: FDA-Public Use
  Company Number: 017435

PATIENT
  Sex: Female

DRUGS (3)
  1. CIMZIA [Suspect]
     Indication: CROHN'S DISEASE
     Dosage: (200 MG 1X/2 WEEKS SUBCUTANEOUS) ; (200 MG 1X/2 WEEKS SUBCUTANEOUS0
     Route: 058
     Dates: start: 20090326
  2. CIMZIA [Suspect]
     Indication: CROHN'S DISEASE
     Dosage: (200 MG 1X/2 WEEKS SUBCUTANEOUS) ; (200 MG 1X/2 WEEKS SUBCUTANEOUS0
     Route: 058
     Dates: start: 20101007
  3. CIMZIA [Suspect]

REACTIONS (6)
  - ABDOMINAL PAIN [None]
  - FATIGUE [None]
  - HYPERSOMNIA [None]
  - INFLUENZA [None]
  - INTESTINAL OBSTRUCTION [None]
  - PAIN [None]
